FAERS Safety Report 9783671 (Version 4)
Quarter: 2014Q2

REPORT INFORMATION
  Report Type: Spontaneous
  Country: US (occurrence: US)
  Receive Date: 20131226
  Receipt Date: 20140424
  Transmission Date: 20141212
  Serious: No
  Sender: FDA-Public Use
  Company Number: US-PFIZER INC-2013366777

PATIENT
  Age: 51 Year
  Sex: Female

DRUGS (10)
  1. LYRICA [Suspect]
     Dosage: 150 MG, 2X/DAY (BID DAILY)
     Route: 048
  2. EFFEXOR XR [Suspect]
     Dosage: 150 MG, 1 CAPSULE DAILY CHS
     Route: 048
  3. TOPROL XL [Concomitant]
     Dosage: UNK
  4. NEXIUM [Concomitant]
     Dosage: UNK
  5. ATIVAN [Concomitant]
     Dosage: UNK
  6. TRAZODONE [Concomitant]
     Dosage: UNK
  7. COUMADIN [Concomitant]
     Dosage: UNK
  8. VICODIN [Concomitant]
     Dosage: UNK
  9. K-LOR [Concomitant]
     Dosage: UNK
  10. FIORICET [Concomitant]
     Dosage: UNK

REACTIONS (2)
  - Influenza [Unknown]
  - Cough [Unknown]
